FAERS Safety Report 6191262-1 (Version None)
Quarter: 2009Q2

REPORT INFORMATION
  Report Type: 
  Country: None (occurrence: None)
  Receive Date: 20090515
  Receipt Date: 20090513
  Transmission Date: 20091009
  Serious: Yes (Hospitalization)
  Sender: FDA-Public Use
  Company Number: US-BRISTOL-MYERS SQUIBB COMPANY-14622492

PATIENT
  Age: 55 Year
  Sex: Female
  Weight: 83 kg

DRUGS (3)
  1. ERBITUX [Suspect]
     Indication: CERVIX CARCINOMA
     Dosage: INITIAL DOSE - 400MG/M2 X 1 WK; 250MG/M2 X 5 WEEK
     Dates: start: 20090406, end: 20090406
  2. CISPLATIN [Suspect]
     Indication: CERVIX CARCINOMA
     Dosage: 30MG/M2/WEEK X 6 WEEK
     Dates: start: 20090406, end: 20090406
  3. RADIATION THERAPY [Suspect]
     Indication: CERVIX CARCINOMA
     Dosage: 1 DF = 3960 CGY. NO OF FRACTIONS = 29; NO OF ELAPSED DAYS = 23.
     Dates: start: 20090506, end: 20090506

REACTIONS (2)
  - DYSPNOEA [None]
  - PULMONARY EMBOLISM [None]
